FAERS Safety Report 16853560 (Version 1)
Quarter: 2019Q3

REPORT INFORMATION
  Report Type: Report from Study
  Country: US (occurrence: US)
  Receive Date: 20190926
  Receipt Date: 20190926
  Transmission Date: 20191005
  Serious: Yes (Hospitalization)
  Sender: FDA-Public Use
  Company Number: US-ROCHE-2410426

PATIENT
  Age: 50 Year
  Sex: Female
  Weight: 93.52 kg

DRUGS (7)
  1. BACLOFEN. [Concomitant]
     Active Substance: BACLOFEN
     Dosage: YES
     Route: 048
  2. ELAVIL [Concomitant]
     Active Substance: AMITRIPTYLINE HYDROCHLORIDE
     Dosage: YES
     Route: 048
     Dates: start: 19870101
  3. DESMOPRESSIN [Concomitant]
     Active Substance: DESMOPRESSIN
     Indication: POSTURAL ORTHOSTATIC TACHYCARDIA SYNDROME
     Dosage: NO
     Route: 045
  4. OCREVUS [Suspect]
     Active Substance: OCRELIZUMAB
     Indication: RELAPSING-REMITTING MULTIPLE SCLEROSIS
     Dosage: HALF DOSES ;ONGOING: NO
     Route: 042
     Dates: start: 20171001
  5. SODIUM CHLORIDE. [Concomitant]
     Active Substance: SODIUM CHLORIDE
     Route: 065
  6. OCREVUS [Suspect]
     Active Substance: OCRELIZUMAB
     Route: 042
     Dates: start: 201802
  7. AMPYRA [Concomitant]
     Active Substance: DALFAMPRIDINE
     Dosage: YES
     Route: 048
     Dates: start: 2010

REACTIONS (2)
  - Fall [Unknown]
  - Cystitis [Recovered/Resolved]

NARRATIVE: CASE EVENT DATE: 20190820
